FAERS Safety Report 9216920 (Version 2)
Quarter: 2013Q3

REPORT INFORMATION
  Report Type: Spontaneous
  Country: US (occurrence: US)
  Receive Date: 20130408
  Receipt Date: 20130708
  Transmission Date: 20140515
  Serious: No
  Sender: FDA-Public Use
  Company Number: US-GLAXOSMITHKLINE-A1010944A

PATIENT
  Age: 52 Year
  Sex: Female
  Weight: 61.4 kg

DRUGS (1)
  1. POTIGA [Suspect]
     Dosage: 200MG THREE TIMES PER DAY
     Route: 048

REACTIONS (2)
  - Urinary hesitation [Not Recovered/Not Resolved]
  - Dysuria [Unknown]
